FAERS Safety Report 13509691 (Version 3)
Quarter: 2017Q3

REPORT INFORMATION
  Report Type: Spontaneous
  Country: US (occurrence: US)
  Receive Date: 20170503
  Receipt Date: 20170706
  Transmission Date: 20171127
  Serious: Yes (Other)
  Sender: FDA-Public Use
  Company Number: US-SA-2017SA032841

PATIENT
  Age: 75 Year
  Sex: Male

DRUGS (2)
  1. PRALUENT [Suspect]
     Active Substance: ALIROCUMAB
     Indication: HYPERLIPIDAEMIA
     Route: 058
     Dates: start: 20160726, end: 20170607
  2. ALIROCUMAB PREFILLED PEN [Concomitant]
     Active Substance: ALIROCUMAB
     Indication: HYPERLIPIDAEMIA
     Dates: start: 20160726, end: 20170607

REACTIONS (6)
  - Blood urine present [Unknown]
  - Dyspnoea [Unknown]
  - Tendonitis [Recovering/Resolving]
  - Prostatic disorder [Not Recovered/Not Resolved]
  - Muscle spasms [Recovering/Resolving]
  - Tendon pain [Unknown]

NARRATIVE: CASE EVENT DATE: 20170115
